FAERS Safety Report 11166548 (Version 1)
Quarter: 2015Q2

REPORT INFORMATION
  Report Type: Spontaneous
  Country: US (occurrence: US)
  Receive Date: 20150605
  Receipt Date: 20150605
  Transmission Date: 20150821
  Serious: No
  Sender: FDA-Public Use
  Company Number: US-JNJFOC-20150417413

PATIENT
  Age: 22 Year
  Sex: Male

DRUGS (3)
  1. VITAMIN B12 [Concomitant]
     Active Substance: CYANOCOBALAMIN
     Route: 030
  2. NICOTINE. [Concomitant]
     Active Substance: NICOTINE
     Route: 048
  3. RISPERIDONE. [Suspect]
     Active Substance: RISPERIDONE
     Indication: PARANOIA
     Route: 048

REACTIONS (2)
  - Dry mouth [Unknown]
  - Fatigue [Unknown]
